FAERS Safety Report 5720589-X (Version None)
Quarter: 2008Q2

REPORT INFORMATION
  Report Type: 
  Country: None (occurrence: None)
  Receive Date: 20080429
  Receipt Date: 20080418
  Transmission Date: 20081010
  Serious: Yes (Hospitalization)
  Sender: FDA-Public Use
  Company Number: IT-RANBAXY-2008RR-14596

PATIENT

DRUGS (1)
  1. CLARITHROMYCIN [Suspect]

REACTIONS (3)
  - CONFUSIONAL STATE [None]
  - ERYTHEMA [None]
  - EYELID OEDEMA [None]
